FAERS Safety Report 4416977-4 (Version None)
Quarter: 2004Q3

REPORT INFORMATION
  Report Type: 
  Country: None (occurrence: None)
  Receive Date: 20040806
  Receipt Date: 20040112
  Transmission Date: 20050211
  Serious: No
  Sender: FDA-Public Use
  Company Number: US-GLAXOSMITHKLINE-A0492570A

PATIENT
  Age: 50 Year
  Sex: Male

DRUGS (2)
  1. MALARONE [Suspect]
     Indication: MALARIA
     Dates: start: 20031221, end: 20040106
  2. NONE [Concomitant]

REACTIONS (3)
  - DYSGEUSIA [None]
  - HYPOAESTHESIA ORAL [None]
  - MOUTH ULCERATION [None]
